FAERS Safety Report 5319579-0 (Version None)
Quarter: 2007Q2

REPORT INFORMATION
  Report Type: 
  Country: None (occurrence: None)
  Receive Date: 20070508
  Receipt Date: 20070427
  Transmission Date: 20071010
  Serious: Yes (Other)
  Sender: FDA-Public Use
  Company Number: US-PFIZER INC-2007034753

PATIENT
  Sex: Female
  Weight: 90.7 kg

DRUGS (8)
  1. NEURONTIN [Suspect]
     Indication: DIABETIC NEUROPATHY
  2. LYRICA [Suspect]
  3. LIPITOR [Concomitant]
  4. WARFARIN SODIUM [Concomitant]
  5. COREG [Concomitant]
  6. ZMAX [Concomitant]
  7. ZESTRIL [Concomitant]
  8. ZETIA [Concomitant]

REACTIONS (1)
  - BLOOD GLUCOSE INCREASED [None]
